FAERS Safety Report 11935643 (Version 2)
Quarter: 2016Q1

REPORT INFORMATION
  Report Type: Spontaneous
  Country: US (occurrence: US)
  Receive Date: 20160121
  Receipt Date: 20160224
  Transmission Date: 20160526
  Serious: Yes (Life-Threatening, Hospitalization)
  Sender: FDA-Public Use
  Company Number: US-JNJFOC-20160116315

PATIENT
  Sex: Female

DRUGS (1)
  1. INVOKANA [Suspect]
     Active Substance: CANAGLIFLOZIN
     Indication: TYPE 2 DIABETES MELLITUS
     Route: 048

REACTIONS (7)
  - Malaise [Unknown]
  - Pollakiuria [Unknown]
  - Dry mouth [Unknown]
  - Chapped lips [Unknown]
  - Blood ketone body increased [Unknown]
  - Asthenia [Unknown]
  - Blood glucose abnormal [Unknown]
